FAERS Safety Report 4395238-6 (Version None)
Quarter: 2004Q3

REPORT INFORMATION
  Report Type: 
  Country: None (occurrence: None)
  Receive Date: 20040706
  Receipt Date: 20040628
  Transmission Date: 20050211
  Serious: Yes (Hospitalization, Other)
  Sender: FDA-Public Use
  Company Number: ERP04000219

PATIENT
  Age: 38 Year
  Sex: Female

DRUGS (5)
  1. ACTONEL [Suspect]
     Dosage: SEE IMAGE
     Route: 048
     Dates: start: 20040120, end: 20040203
  2. REDOMEX (AMITRIPTYLINE HYDROCHLORIDE) [Concomitant]
  3. DIAZEPAM [Concomitant]
  4. CALCITONIN (CALCITONIN) [Concomitant]
  5. DOLZAM (TRAMADOL HYDROCHLORIDE) [Concomitant]

REACTIONS (16)
  - ANGER [None]
  - COMA [None]
  - DELIRIUM [None]
  - DEPRESSION [None]
  - DRUG SCREEN POSITIVE [None]
  - DRUG TOXICITY [None]
  - EMOTIONAL DISORDER [None]
  - FEELING ABNORMAL [None]
  - HYPOPNOEA [None]
  - HYPOTHERMIA [None]
  - IMPULSE-CONTROL DISORDER [None]
  - INJURY ASPHYXIATION [None]
  - PUPILLARY REFLEX IMPAIRED [None]
  - RHABDOMYOLYSIS [None]
  - SUICIDE ATTEMPT [None]
  - THROMBOCYTOPENIA [None]
